FAERS Safety Report 9559213 (Version 1)
Quarter: 2013Q3

REPORT INFORMATION
  Report Type: Spontaneous
  Country: US (occurrence: None)
  Receive Date: 20130924
  Receipt Date: 20130924
  Transmission Date: 20140515
  Serious: Yes (Other)
  Sender: FDA-Public Use
  Company Number: USA/USA/13/0034656

PATIENT
  Age: 66 Year
  Sex: Male

DRUGS (2)
  1. GEMCITABINE [Suspect]
     Indication: ADENOCARCINOMA PANCREAS
     Dosage: 1000 MG/M2, CYCLICAL, UNKNOWN
  2. FLUOROURACIL [Suspect]
     Indication: ADENOCARCINOMA PANCREAS
     Dosage: 225 MG/M2, CYCLICAL, UNKNOWN

REACTIONS (6)
  - Gouty arthritis [None]
  - Neutropenia [None]
  - Thrombocytopenia [None]
  - Nausea [None]
  - Vomiting [None]
  - Jaundice [None]
